FAERS Safety Report 4904842-5 (Version None)
Quarter: 2006Q1

REPORT INFORMATION
  Report Type: 
  Country: None (occurrence: None)
  Receive Date: 20060208
  Receipt Date: 20051011
  Transmission Date: 20060701
  Serious: No
  Sender: FDA-Public Use
  Company Number: US-GLAXOSMITHKLINE-A0577861A

PATIENT
  Age: 60 Year
  Sex: Female

DRUGS (3)
  1. PAXIL [Suspect]
     Indication: DEPRESSION
     Dosage: 20MG TWICE PER DAY
     Route: 048
  2. PAROXETINE HCL [Suspect]
     Indication: DEPRESSION
     Dosage: 20MG TWICE PER DAY
     Route: 048
  3. CLONAZEPAM [Concomitant]

REACTIONS (4)
  - CRYING [None]
  - DEPRESSED MOOD [None]
  - HOT FLUSH [None]
  - SOMNOLENCE [None]
